FAERS Safety Report 11500865 (Version 1)
Quarter: 2015Q3

REPORT INFORMATION
  Report Type: Spontaneous
  Country: US (occurrence: None)
  Receive Date: 20150911
  Receipt Date: 20150911
  Transmission Date: 20151125
  Serious: Yes (Hospitalization)
  Sender: FDA-Public Use
  Company Number: None

PATIENT
  Age: 51 Year
  Sex: Female
  Weight: 92.99 kg

DRUGS (17)
  1. PERPHENAZINE. [Suspect]
     Active Substance: PERPHENAZINE
     Indication: DEPRESSION
     Route: 048
     Dates: start: 20150101, end: 20150808
  2. DOCUSATE [Concomitant]
     Active Substance: DOCUSATE
  3. BUMETANIDE. [Concomitant]
     Active Substance: BUMETANIDE
  4. ONDANSETRON [Concomitant]
     Active Substance: ONDANSETRON
  5. CALCIUM (OS-CAL) [Concomitant]
  6. LEVOTHYROXINE. [Concomitant]
     Active Substance: LEVOTHYROXINE
  7. OMEPRAZOLE. [Concomitant]
     Active Substance: OMEPRAZOLE
  8. VITAMIN D [Concomitant]
     Active Substance: CHOLECALCIFEROL
  9. TUMS [Concomitant]
     Active Substance: CALCIUM CARBONATE
  10. CLARITIN [Concomitant]
     Active Substance: LORATADINE
  11. VITAMIN B COMPLEX [Concomitant]
     Active Substance: CYANOCOBALAMIN\DEXPANTHENOL\NIACINAMIDE\PYRIDOXINE HYDROCHLORIDE\RIBOFLAVIN 5^-PHOSPHATE SODIUM\THIAMINE HYDROCHLORIDE\VITAMIN B COMPLEX
  12. VITAMIN A [Concomitant]
     Active Substance: VITAMIN A
  13. COQ10 [Concomitant]
     Active Substance: UBIDECARENONE
  14. VITAMIN C [Concomitant]
     Active Substance: ASCORBIC ACID
  15. BUPROPION SR [Concomitant]
     Active Substance: BUPROPION
  16. DEPAKOTE ER [Concomitant]
     Active Substance: DIVALPROEX SODIUM
  17. FOLIC ACID. [Concomitant]
     Active Substance: FOLIC ACID

REACTIONS (3)
  - Depression [None]
  - Blood cholesterol increased [None]
  - Weight increased [None]

NARRATIVE: CASE EVENT DATE: 20150808
